FAERS Safety Report 12558201 (Version 1)
Quarter: 2016Q3

REPORT INFORMATION
  Report Type: Spontaneous
  Country: DE (occurrence: DE)
  Receive Date: 20160714
  Receipt Date: 20160714
  Transmission Date: 20161109
  Serious: Yes (Life-Threatening, Hospitalization)
  Sender: FDA-Public Use
  Company Number: DE-B.I. PHARMACEUTICALS,INC./RIDGEFIELD-2016-BI-43935DE

PATIENT
  Age: 19 Year
  Sex: Male
  Weight: 84 kg

DRUGS (8)
  1. PRADAXA [Suspect]
     Active Substance: DABIGATRAN ETEXILATE MESYLATE
     Indication: THROMBOSIS PROPHYLAXIS
  2. PRADAXA [Suspect]
     Active Substance: DABIGATRAN ETEXILATE MESYLATE
     Indication: THROMBOSIS PROPHYLAXIS
  3. PRADAXA [Suspect]
     Active Substance: DABIGATRAN ETEXILATE MESYLATE
     Indication: PORTAL VEIN THROMBOSIS
  4. PRADAXA [Suspect]
     Active Substance: DABIGATRAN ETEXILATE MESYLATE
     Indication: THROMBOSIS PROPHYLAXIS
  5. PRADAXA [Suspect]
     Active Substance: DABIGATRAN ETEXILATE MESYLATE
     Indication: SPLENIC THROMBOSIS
     Dosage: 220 MG
     Route: 048
     Dates: start: 201601, end: 20160616
  6. SPIRONOLACTON [Concomitant]
     Active Substance: SPIRONOLACTONE
     Indication: ASCITES
     Dosage: 100 NR
     Route: 048
     Dates: start: 201601
  7. PROPANOLOL [Concomitant]
     Active Substance: PROPRANOLOL HYDROCHLORIDE
     Indication: PRODUCT USED FOR UNKNOWN INDICATION
     Dosage: 30 NR
     Route: 048
  8. TORASEMID [Concomitant]
     Active Substance: TORSEMIDE
     Indication: ASCITES
     Dosage: 20 NR
     Route: 048
     Dates: start: 201601

REACTIONS (5)
  - Oesophageal varices haemorrhage [Recovered/Resolved]
  - Anaemia [Unknown]
  - Diabetic coma [Unknown]
  - Haemoglobin decreased [Unknown]
  - Haematemesis [Recovered/Resolved]

NARRATIVE: CASE EVENT DATE: 20160616
